FAERS Safety Report 8347603-X (Version None)
Quarter: 2012Q2

REPORT INFORMATION
  Report Type: 
  Country: None (occurrence: None)
  Receive Date: 20120509
  Receipt Date: 20120503
  Transmission Date: 20120825
  Serious: Yes (Death)
  Sender: FDA-Public Use
  Company Number: US-GILEAD-2012-0053615

PATIENT
  Sex: Male

DRUGS (15)
  1. SPIRIVA [Concomitant]
  2. HYDROXYCHLOROQUINE [Concomitant]
  3. LETAIRIS [Suspect]
     Indication: PULMONARY HYPERTENSION
     Dosage: 5 MG, UNK
     Route: 048
     Dates: start: 20120105, end: 20120302
  4. LETAIRIS [Suspect]
     Indication: LUNG DISORDER
  5. BONIVA [Concomitant]
  6. FLUCONAZOLE [Concomitant]
  7. GABAPENTIN [Concomitant]
  8. ALBUTEROL SULFATE [Concomitant]
  9. IPRATROPIUM BROMIDE [Concomitant]
  10. REVATIO [Concomitant]
  11. DILTIAZEM [Concomitant]
  12. METHOTREXATE SODIUM [Concomitant]
  13. FOLIC ACID [Concomitant]
  14. ADVAIR DISKUS 100/50 [Concomitant]
  15. FLUTICASONE FUROATE [Concomitant]

REACTIONS (1)
  - INTERSTITIAL LUNG DISEASE [None]
